FAERS Safety Report 8271327-0 (Version None)
Quarter: 2012Q2

REPORT INFORMATION
  Report Type: 
  Country: None (occurrence: None)
  Receive Date: 20120410
  Receipt Date: 20120112
  Transmission Date: 20120825
  Serious: No
  Sender: FDA-Public Use
  Company Number: US-NOVEN-12US003927

PATIENT
  Sex: Female

DRUGS (1)
  1. FENTANYL CITRATE [Suspect]
     Indication: MIGRAINE
     Dosage: 50 UG/HR Q 72HRS
     Route: 062

REACTIONS (2)
  - FATIGUE [None]
  - DIZZINESS [None]
